FAERS Safety Report 8997198 (Version 1)
Quarter: 2013Q1

REPORT INFORMATION
  Report Type: Report from Study
  Country: US (occurrence: US)
  Receive Date: 20130104
  Receipt Date: 20130104
  Transmission Date: 20140127
  Serious: Yes (Hospitalization, Other)
  Sender: FDA-Public Use
  Company Number: US-ABBOTT-12P-163-1028344-00

PATIENT
  Age: 74 None
  Sex: Female
  Weight: 63.11 kg

DRUGS (5)
  1. HUMIRA [Suspect]
     Indication: PSORIASIS
     Dates: start: 2005, end: 20120127
  2. HUMIRA [Suspect]
     Indication: PSORIATIC ARTHROPATHY
  3. DIAMOX [Suspect]
     Indication: DYSPNOEA
  4. GEMFIBROZIL [Concomitant]
     Indication: DIABETES MELLITUS
  5. LOPID [Concomitant]
     Indication: BLOOD CHOLESTEROL INCREASED

REACTIONS (8)
  - Joint swelling [Recovered/Resolved]
  - Asthenia [Recovered/Resolved]
  - Hypercapnia [Unknown]
  - Decubitus ulcer [Recovering/Resolving]
  - Arthritis infective [Recovered/Resolved]
  - Dyspnoea [Recovered/Resolved]
  - Blood glucose decreased [Recovered/Resolved]
  - Knee deformity [Recovered/Resolved]
